FAERS Safety Report 9203643 (Version 2)
Quarter: 2013Q2

REPORT INFORMATION
  Report Type: Spontaneous
  Country: JP (occurrence: JP)
  Receive Date: 20130402
  Receipt Date: 20130610
  Transmission Date: 20140414
  Serious: Yes (Death, Other)
  Sender: FDA-Public Use
  Company Number: PHHY2012JP109723

PATIENT
  Age: 63 Year
  Sex: Female
  Weight: 58 kg

DRUGS (12)
  1. NEORAL [Suspect]
     Indication: INTERSTITIAL LUNG DISEASE
     Dosage: 100 MG, UNK
     Route: 048
     Dates: start: 20121121, end: 20121126
  2. PREDONINE [Suspect]
     Indication: INTERSTITIAL LUNG DISEASE
     Dosage: 50 UNK, UNK
  3. PREDONINE [Suspect]
     Dosage: 40 MG, DAILY
     Route: 048
     Dates: start: 20121014, end: 20121213
  4. BAKTAR [Suspect]
     Indication: INFECTION PROPHYLAXIS
     Dosage: 2 DF, UNK
     Route: 048
     Dates: start: 20121014, end: 20121213
  5. NEXIUM//ESOMEPRAZOLE MAGNESIUM [Suspect]
     Indication: GASTRIC ULCER
     Dosage: 20 MG, UNK
     Route: 048
     Dates: start: 20121030, end: 20121213
  6. FOSAMAC [Suspect]
     Indication: OSTEOPOROSIS
     Dosage: 35 MG, QW
     Route: 048
     Dates: start: 20121015, end: 20121213
  7. MUCODYNE [Concomitant]
     Dosage: 1500 MG, UNK
     Route: 048
     Dates: start: 20121005, end: 20121213
  8. DIOVAN [Concomitant]
     Indication: HYPERTENSION
     Dosage: 80 MG, UNK
     Route: 048
     Dates: start: 20121005, end: 20121213
  9. BIOFERMIN [Concomitant]
     Dosage: 3 DF, UNK
     Route: 048
     Dates: start: 20121018, end: 20121213
  10. METHYLPREDNISOLONE [Concomitant]
     Dosage: 1000 MG, DAILY
  11. METHYLPREDNISOLONE [Concomitant]
     Dosage: 500 UNK, UNK
  12. ENDOXAN [Concomitant]
     Dosage: 500 MG, UNK
     Dates: start: 20121030

REACTIONS (8)
  - Respiratory failure [Fatal]
  - Uveitis [Recovered/Resolved]
  - Conjunctival oedema [Recovered/Resolved]
  - Eyelid oedema [Recovered/Resolved]
  - Diplopia [Unknown]
  - Lacrimation increased [Unknown]
  - Visual acuity reduced [Recovering/Resolving]
  - Cataract [Not Recovered/Not Resolved]
